FAERS Safety Report 5657387-1 (Version None)
Quarter: 2008Q1

REPORT INFORMATION
  Report Type: 
  Country: None (occurrence: None)
  Receive Date: 20080310
  Receipt Date: 20080304
  Transmission Date: 20080703
  Serious: Yes (Hospitalization)
  Sender: FDA-Public Use
  Company Number: JP-BRISTOL-MYERS SQUIBB COMPANY-14105704

PATIENT
  Age: 37 Year
  Sex: Male

DRUGS (7)
  1. REYATAZ [Suspect]
     Indication: HIV INFECTION
     Route: 048
     Dates: start: 20050330
  2. EPIVIR [Suspect]
     Indication: HIV INFECTION
     Route: 048
     Dates: start: 20050330
  3. NORVIR [Suspect]
     Indication: HIV INFECTION
     Route: 048
     Dates: start: 20050330
  4. VIREAD [Suspect]
     Indication: HIV INFECTION
     Route: 048
     Dates: start: 20050330
  5. RECOMBINATE [Concomitant]
     Route: 041
     Dates: start: 20050330
  6. PEGINTERFERON ALFA-2B [Concomitant]
     Route: 058
     Dates: start: 20051004
  7. PARIET [Concomitant]
     Route: 048
     Dates: start: 20051017, end: 20051210

REACTIONS (2)
  - MELAENA [None]
  - VARICES OESOPHAGEAL [None]
